FAERS Safety Report 11334273 (Version 1)
Quarter: 2015Q3

REPORT INFORMATION
  Report Type: Spontaneous
  Country: US (occurrence: US)
  Receive Date: 20150803
  Receipt Date: 20150803
  Transmission Date: 20151125
  Serious: Yes (Other)
  Sender: FDA-Public Use
  Company Number: US-ALLERGAN-1514698US

PATIENT
  Sex: Female
  Weight: 72.56 kg

DRUGS (1)
  1. LASTACAFT [Suspect]
     Active Substance: ALCAFTADINE
     Indication: SEASONAL ALLERGY
     Dosage: 2 GTT, UNK
     Route: 047
     Dates: start: 20150718

REACTIONS (10)
  - Swelling face [Recovering/Resolving]
  - Skin exfoliation [Recovering/Resolving]
  - Hyperaesthesia [Recovering/Resolving]
  - Eye swelling [Recovering/Resolving]
  - Keratitis [Recovering/Resolving]
  - Instillation site pain [Recovering/Resolving]
  - Hypersensitivity [Recovering/Resolving]
  - Erythema [Recovering/Resolving]
  - Corneal infiltrates [Recovering/Resolving]
  - Skin burning sensation [Recovering/Resolving]

NARRATIVE: CASE EVENT DATE: 20150718
